FAERS Safety Report 9123762 (Version 1)
Quarter: 2013Q1

REPORT INFORMATION
  Report Type: Spontaneous
  Country: US (occurrence: US)
  Receive Date: 20130116
  Receipt Date: 20130116
  Transmission Date: 20140127
  Serious: Yes (Hospitalization)
  Sender: FDA-Public Use
  Company Number: US-BAYER-2013-004515

PATIENT
  Age: 29 Year
  Sex: Female
  Weight: 63 kg

DRUGS (5)
  1. YAZ [Suspect]
  2. LIALDA [Concomitant]
     Indication: COLITIS
     Dosage: 1.2 G, UNK
     Dates: start: 20091102
  3. CORTIFOAM [Concomitant]
     Dosage: 10 %, UNK
     Dates: start: 20090926
  4. ASACOL [Concomitant]
     Indication: COLITIS
     Dosage: 4 TABS, TID
     Route: 048
     Dates: start: 20091102, end: 20091215
  5. PREDNISONE [Concomitant]
     Dosage: 4 MG, UNK
     Dates: start: 20091130

REACTIONS (1)
  - Deep vein thrombosis [Recovered/Resolved]
